APPROVED DRUG PRODUCT: GEMFIBROZIL
Active Ingredient: GEMFIBROZIL
Strength: 600MG
Dosage Form/Route: TABLET;ORAL
Application: A078599 | Product #001
Applicant: HIKMA PHARMACEUTICALS
Approved: Aug 16, 2010 | RLD: No | RS: No | Type: DISCN